FAERS Safety Report 21496397 (Version 3)
Quarter: 2024Q4

REPORT INFORMATION
  Report Type: Spontaneous
  Country: US (occurrence: US)
  Receive Date: 20221022
  Receipt Date: 20241016
  Transmission Date: 20250115
  Serious: No
  Sender: CELLTRION
  Company Number: US-CELLTRION INC.-2022US007354

PATIENT

DRUGS (16)
  1. INFLECTRA [Suspect]
     Active Substance: INFLIXIMAB-DYYB
     Indication: Rheumatoid arthritis
     Dosage: 5 MG/KG (300MG) WEEKS 0,2,6 THEN EVERY 8 WEEKS/300 MG, CYCLIC (WEEKS 0,2,6 THEN EVERY 8 WEEKS)
     Route: 042
     Dates: start: 202201
  2. NORVASC [Concomitant]
     Active Substance: AMLODIPINE BESYLATE
     Dosage: 1 TABLET BY MOUTH EVERY 12 HOURS
     Route: 048
  3. LAC-HYDRIN [Concomitant]
     Active Substance: AMMONIUM LACTATE
  4. LIPITOR [Concomitant]
     Active Substance: ATORVASTATIN CALCIUM
     Dosage: 10 MILLIGRAM (1 TABLET), EVERYDAY AT BEDTIME BY MOUTH
     Route: 048
  5. VITAMIN D3 [Concomitant]
     Active Substance: CHOLECALCIFEROL
     Dosage: 50 MICROGRAM 50 MCG (2000 UT) TABLET, TAKE 2,000 UNITS BY MOUTH
     Route: 048
  6. TIAZAC [Concomitant]
     Active Substance: DILTIAZEM HYDROCHLORIDE
  7. PLAQUENIL [Concomitant]
     Active Substance: HYDROXYCHLOROQUINE SULFATE
     Dosage: 1 AND 1/2 TABLETS BY MOUTH DAILY
     Route: 048
  8. FEMARA [Concomitant]
     Active Substance: LETROZOLE
     Dosage: 1 TABLET (2.5 MG TOTAL) BY MOUTH IN THE MORNING
     Route: 048
  9. SYNTHROID [Concomitant]
     Active Substance: LEVOTHYROXINE SODIUM
     Dosage: 25 MCG BY MOUTH BEFORE BREAKFAST.
     Route: 048
  10. RAYOS [Concomitant]
     Active Substance: PREDNISONE
     Dosage: 3 TAB AT BEDTIME
  11. PROLENSA [Concomitant]
     Active Substance: BROMFENAC SODIUM
     Dosage: 1 DROP IN LEFT EYE ONCE A DAY FOR 4 WEEKS (START 3 DAYS BEFORE SURGERY)
  12. ACTONEL [Concomitant]
     Active Substance: RISEDRONATE SODIUM
     Dosage: 1 TABLET (150 MG) BY MOUTH EVERY 30 (THIRTY) DAYS
  13. LISINOPRIL [Concomitant]
     Active Substance: LISINOPRIL
     Dosage: TAKE 1 TABLET DAILY
     Dates: start: 20120606
  14. ZOCOR [Concomitant]
     Active Substance: SIMVASTATIN
     Dosage: 1 TABLET DAILY
     Dates: start: 20120606
  15. CALCIUM CARBONATE [Concomitant]
     Active Substance: CALCIUM CARBONATE
  16. LEVOXYL [Concomitant]
     Active Substance: LEVOTHYROXINE SODIUM

REACTIONS (5)
  - Condition aggravated [Unknown]
  - Hypertension [Unknown]
  - Pruritus [Unknown]
  - Drug ineffective [Unknown]
  - Off label use [Unknown]

NARRATIVE: CASE EVENT DATE: 20220225
